FAERS Safety Report 12513965 (Version 3)
Quarter: 2016Q3

REPORT INFORMATION
  Report Type: Spontaneous
  Country: US (occurrence: US)
  Receive Date: 20160630
  Receipt Date: 20160713
  Transmission Date: 20161109
  Serious: Yes (Hospitalization)
  Sender: FDA-Public Use
  Company Number: US-JNJFOC-20160527960

PATIENT
  Age: 56 Year
  Sex: Female
  Weight: 73.03 kg

DRUGS (2)
  1. XARELTO [Suspect]
     Active Substance: RIVAROXABAN
     Indication: DEEP VEIN THROMBOSIS
     Dosage: RIVAOROXABAN WAS GIVEN IN VARYING DOSES OF 10MG, 15MG AND 20MG
     Route: 048
     Dates: start: 20150306, end: 201506
  2. XARELTO [Suspect]
     Active Substance: RIVAROXABAN
     Indication: DEEP VEIN THROMBOSIS
     Route: 048
     Dates: end: 20150902

REACTIONS (2)
  - Gastrointestinal haemorrhage [Recovering/Resolving]
  - Respiratory failure [Recovering/Resolving]

NARRATIVE: CASE EVENT DATE: 20150624
